FAERS Safety Report 21883009 (Version 2)
Quarter: 2024Q3

REPORT INFORMATION
  Report Type: Report from Study
  Country: ES (occurrence: ES)
  Receive Date: 20230119
  Receipt Date: 20240723
  Transmission Date: 20241017
  Serious: Yes (Hospitalization, Other)
  Sender: ROCHE
  Company Number: ES-CELLTRION HEALTHCARE HUNGARY KFT-2023ES000173

PATIENT
  Age: 69 Year
  Sex: Male
  Weight: 59.65 kg

DRUGS (13)
  1. RITUXIMAB [Suspect]
     Active Substance: RITUXIMAB
     Indication: Marginal zone lymphoma
     Dosage: 660 MILLIGRAM
     Route: 041
     Dates: start: 20220922, end: 20221117
  2. RITUXIMAB [Suspect]
     Active Substance: RITUXIMAB
     Dosage: 375 MG/M2 (660 MG) FOR 5 CYCLES
     Route: 041
     Dates: start: 20220922, end: 20230112
  3. RITUXIMAB [Suspect]
     Active Substance: RITUXIMAB
     Route: 042
     Dates: end: 20230125
  4. TAFASITAMAB-CXIX [Suspect]
     Active Substance: TAFASITAMAB-CXIX
     Indication: Marginal zone lymphoma
     Dosage: 768 MILLIGRAM (LAST DOSE PRIOR TO SERIOUS ADVERSE EVENT WAS TAKEN ON 17 NOV 2022)
     Route: 065
     Dates: start: 20220922, end: 20230112
  5. TAFASITAMAB-CXIX [Suspect]
     Active Substance: TAFASITAMAB-CXIX
     Route: 042
     Dates: end: 20230125
  6. TAFASITAMAB-CXIX [Suspect]
     Active Substance: TAFASITAMAB-CXIX
     Dosage: 768 MILLIGRAM (LAST DOSE PRIOR TO SERIOUS ADVERSE EVENT WAS TAKEN ON 17 NOV 2022)
     Route: 042
     Dates: start: 20230922
  7. LENALIDOMIDE [Suspect]
     Active Substance: LENALIDOMIDE
     Indication: Marginal zone lymphoma
     Dosage: 40 MILLIGRAM (LAST DOSE PRIOR TO SERIOUS ADVERSE EVENT WAS TAKEN ON 17 NOV 2022)
     Route: 048
     Dates: start: 20220922, end: 20231117
  8. LENALIDOMIDE [Suspect]
     Active Substance: LENALIDOMIDE
     Route: 048
     Dates: start: 20220922
  9. LENALIDOMIDE [Suspect]
     Active Substance: LENALIDOMIDE
     Dosage: QD (ON DAYS 1 T 21) FOR 12 CYCLES
     Route: 048
     Dates: end: 20221128
  10. LENALIDOMIDE [Suspect]
     Active Substance: LENALIDOMIDE
     Route: 048
     Dates: end: 20230201
  11. LENALIDOMIDE [Suspect]
     Active Substance: LENALIDOMIDE
     Route: 048
     Dates: start: 20220722, end: 20230125
  12. LENALIDOMIDE [Suspect]
     Active Substance: LENALIDOMIDE
     Route: 048
     Dates: start: 20220822
  13. LENALIDOMIDE [Suspect]
     Active Substance: LENALIDOMIDE
     Route: 048

REACTIONS (5)
  - Respiratory failure [Unknown]
  - Lower respiratory tract infection [Recovered/Resolved]
  - Atypical pneumonia [Unknown]
  - Off label use [Unknown]
  - Dyspnoea [Recovered/Resolved]

NARRATIVE: CASE EVENT DATE: 20221129
